FAERS Safety Report 10674130 (Version 1)
Quarter: 2014Q4

REPORT INFORMATION
  Report Type: Spontaneous
  Country: US (occurrence: None)
  Receive Date: 20141222
  Receipt Date: 20141222
  Transmission Date: 20150529
  Serious: Yes (Life-Threatening, Hospitalization)
  Sender: FDA-Public Use
  Company Number: 1224850-2013-00002

PATIENT
  Age: 79 Year
  Sex: Male

DRUGS (22)
  1. AMLODIPINE [Concomitant]
     Active Substance: AMLODIPINE BESYLATE
  2. MINOXIDIL. [Concomitant]
     Active Substance: MINOXIDIL
  3. FISH OIL [Concomitant]
     Active Substance: FISH OIL
  4. PHOSLO [Suspect]
     Active Substance: CALCIUM ACETATE
     Indication: MINERAL METABOLISM DISORDER
     Route: 048
  5. PERITONEAL DIALYSIS DELIVERY SYSTEM [Concomitant]
  6. OXYGEN. [Concomitant]
     Active Substance: OXYGEN
  7. PERITONEAL DIALYSIS CYCLER SET [Concomitant]
  8. LEVOTHYROXINE [Concomitant]
     Active Substance: LEVOTHYROXINE
  9. ASPIRIN. [Concomitant]
     Active Substance: ASPIRIN
  10. CALCIUM CARBONATE. [Concomitant]
     Active Substance: CALCIUM CARBONATE
  11. DELFLEX [Concomitant]
     Active Substance: CALCIUM CHLORIDE\DEXTROSE MONOHYDRATE\MAGNESIUM CHLORIDE\SODIUM CHLORIDE\SODIUM LACTATE
  12. DEXTROSE. [Concomitant]
     Active Substance: DEXTROSE
  13. LASIX [Concomitant]
     Active Substance: FUROSEMIDE
  14. VENTOLIN [Concomitant]
     Active Substance: ALBUTEROL SULFATE
  15. LOSARTAN POTASSIUM. [Concomitant]
     Active Substance: LOSARTAN POTASSIUM
  16. MULTIVITAMINS [Concomitant]
     Active Substance: VITAMINS
  17. COZAAR [Concomitant]
     Active Substance: LOSARTAN POTASSIUM
  18. PRAVASTATIN [Concomitant]
     Active Substance: PRAVASTATIN\PRAVASTATIN SODIUM
  19. PHOSLO [Concomitant]
     Active Substance: CALCIUM ACETATE
  20. LOPRESSOR [Concomitant]
     Active Substance: METOPROLOL TARTRATE
  21. ZOFRAN [Concomitant]
     Active Substance: ONDANSETRON HYDROCHLORIDE
  22. LEXAPRO [Concomitant]
     Active Substance: ESCITALOPRAM OXALATE

REACTIONS (4)
  - Cardiac arrest [None]
  - Dyspnoea [None]
  - Pain in extremity [None]
  - Acute myocardial infarction [None]

NARRATIVE: CASE EVENT DATE: 20130727
